FAERS Safety Report 5465770-2 (Version None)
Quarter: 2007Q3

REPORT INFORMATION
  Report Type: 
  Country: None (occurrence: None)
  Receive Date: 20070924
  Receipt Date: 20070917
  Transmission Date: 20080115
  Serious: Yes (Other)
  Sender: FDA-Public Use
  Company Number: B0484559A

PATIENT
  Age: 22 Year
  Sex: Female
  Weight: 70 kg

DRUGS (6)
  1. LAMICTAL [Suspect]
     Indication: BIPOLAR DISORDER
     Dosage: 200MG TWICE PER DAY
     Route: 065
     Dates: start: 20050211
  2. SALAZOPYRINE [Concomitant]
     Dates: end: 20070401
  3. LITHIUM CARBONATE [Concomitant]
     Indication: BIPOLAR DISORDER
     Dosage: 750MG TWICE PER DAY
  4. LEXAPRO [Concomitant]
     Indication: OBSESSIVE-COMPULSIVE DISORDER
     Dosage: 20MG IN THE MORNING
  5. QUETIAPINE FUMARATE [Concomitant]
     Indication: BIPOLAR DISORDER
     Dosage: 400MG AT NIGHT
  6. LEVOTHYROXINE SODIUM [Concomitant]
     Indication: HYPOTHYROIDISM
     Dosage: 50MCG IN THE MORNING

REACTIONS (8)
  - ARTHRALGIA [None]
  - IDIOPATHIC THROMBOCYTOPENIC PURPURA [None]
  - MICROCYTIC ANAEMIA [None]
  - NEUTROPENIA [None]
  - NEUTROPHIL COUNT DECREASED [None]
  - PANCYTOPENIA [None]
  - PLATELET COUNT DECREASED [None]
  - THROMBOCYTOPENIA [None]
